FAERS Safety Report 8548553-6 (Version None)
Quarter: 2012Q3

REPORT INFORMATION
  Report Type: 
  Country: None (occurrence: None)
  Receive Date: 20120717
  Receipt Date: 20120705
  Transmission Date: 20120928
  Serious: Yes (Disabling, Other)
  Sender: FDA-Public Use
  Company Number: FK201201854

PATIENT
  Age: 26 Year
  Sex: Male

DRUGS (3)
  1. PHOSPHATE (PHOPSHORIC ACID SODIUM) [Concomitant]
  2. HEPARIN [Suspect]
     Indication: COAGULOPATHY
     Dosage: 20 IU/KG, PER HOUR, TITRATED BY APTT LEVELS, INTRAVENOUS
     Route: 042
  3. DAGRAVIT [Concomitant]

REACTIONS (4)
  - FIBULA FRACTURE [None]
  - HUMERUS FRACTURE [None]
  - MULTIPLE FRACTURES [None]
  - ULNA FRACTURE [None]
